FAERS Safety Report 24571920 (Version 1)
Quarter: 2024Q4

REPORT INFORMATION
  Report Type: Other
  Country: US (occurrence: US)
  Receive Date: 20241101
  Receipt Date: 20241101
  Transmission Date: 20250115
  Serious: Yes (Life-Threatening, Hospitalization, Other)
  Sender: YOUNGTECH PHARMACEUTICALS, INC.
  Company Number: US-YoungTech Pharmaceuticals, Inc.-2164251

PATIENT
  Age: 57 Year
  Sex: Female

DRUGS (3)
  1. METOPROLOL TARTRATE [Suspect]
     Active Substance: METOPROLOL TARTRATE
     Indication: Product used for unknown indication
  2. VERAPAMIL [Suspect]
     Active Substance: VERAPAMIL HYDROCHLORIDE
  3. LISINOPRIL [Suspect]
     Active Substance: LISINOPRIL

REACTIONS (1)
  - BRASH syndrome [Recovered/Resolved]
